FAERS Safety Report 16014370 (Version 13)
Quarter: 2022Q1

REPORT INFORMATION
  Report Type: Spontaneous
  Country: GB (occurrence: GB)
  Receive Date: 20190227
  Receipt Date: 20220329
  Transmission Date: 20220424
  Serious: Yes (Death, Other)
  Sender: FDA-Public Use
  Company Number: PHHY2019GB041230

PATIENT
  Age: 78 Year
  Sex: Female

DRUGS (71)
  1. LETROZOLE [Suspect]
     Active Substance: LETROZOLE
     Indication: Product used for unknown indication
     Dosage: 2.5 MG, QD (2.5 MG, DAILY, DISCONTINUED DUE TO DISEASE PROGRESSION AND FURTHER ANTICANCER TREATMENT)
     Route: 048
     Dates: start: 20160413, end: 20180704
  2. LETROZOLE [Suspect]
     Active Substance: LETROZOLE
     Dosage: 2.5 MG, QD
     Route: 048
     Dates: start: 20180704
  3. DOCETAXEL [Suspect]
     Active Substance: DOCETAXEL
     Indication: Breast cancer metastatic
     Dosage: 65 MG, Q3W
     Route: 042
     Dates: start: 20160226, end: 20160226
  4. DOCETAXEL [Suspect]
     Active Substance: DOCETAXEL
     Dosage: UNK
     Route: 065
  5. TAMOXIFEN [Suspect]
     Active Substance: TAMOXIFEN
     Indication: Breast cancer metastatic
     Dosage: 20 MG, QD
     Route: 048
     Dates: start: 20180704, end: 20180915
  6. TAMOXIFEN [Suspect]
     Active Substance: TAMOXIFEN
     Dosage: 20 MG, QD
     Route: 048
     Dates: start: 20180915
  7. NERATINIB [Suspect]
     Active Substance: NERATINIB
     Indication: Product used for unknown indication
     Dosage: 240 MG, QD
     Route: 048
     Dates: start: 20190403
  8. ADO-TRASTUZUMAB EMTANSINE [Suspect]
     Active Substance: ADO-TRASTUZUMAB EMTANSINE
     Indication: Breast cancer metastatic
     Dosage: 220 MG, Q3W
     Route: 042
     Dates: start: 20180928, end: 20190315
  9. TRASTUZUMAB [Suspect]
     Active Substance: TRASTUZUMAB
     Indication: Breast cancer metastatic
     Dosage: 525 MG, Q3W (LOADING DOSE)
     Route: 041
     Dates: start: 20160225, end: 20160225
  10. TRASTUZUMAB [Suspect]
     Active Substance: TRASTUZUMAB
     Dosage: 400 MG, Q3W (MAINTAINENCE DOSE)
     Route: 042
     Dates: start: 20160225, end: 20160617
  11. TRASTUZUMAB [Suspect]
     Active Substance: TRASTUZUMAB
     Dosage: 350 MG, Q3W (DISCONTINUED DUE TO DISEASE PROGRESSION AND FURTHER ANTICANCER TREATMENT)
     Route: 042
     Dates: start: 20160707, end: 20180822
  12. PERTUZUMAB [Suspect]
     Active Substance: PERTUZUMAB
     Indication: Breast cancer metastatic
     Dosage: 840 MG, Q3W (LOADING DOSE)
     Route: 042
     Dates: start: 20160225, end: 20160225
  13. PERTUZUMAB [Suspect]
     Active Substance: PERTUZUMAB
     Dosage: 420 MG, TIW (MAINTAINENCE DOSE)
     Route: 042
     Dates: start: 20160225, end: 20180704
  14. PERTUZUMAB [Suspect]
     Active Substance: PERTUZUMAB
     Dosage: 840 MG, TIW (LOADING DOSE)
     Route: 042
     Dates: start: 20180704
  15. CINACALCET [Suspect]
     Active Substance: CINACALCET
     Indication: Hypercalcaemia of malignancy
     Dosage: 30 MG, QD
     Route: 048
     Dates: start: 20190413, end: 201907
  16. XGEVA [Suspect]
     Active Substance: DENOSUMAB
     Indication: Product used for unknown indication
     Dosage: 120 MG (EVERY 3-4 WEEKS)
     Route: 058
     Dates: start: 20180110, end: 20190426
  17. DEXAMETHASONE [Concomitant]
     Active Substance: DEXAMETHASONE
     Indication: Product used for unknown indication
     Dosage: 16 MG, QD
     Route: 048
     Dates: start: 20160225
  18. DEXAMETHASONE [Concomitant]
     Active Substance: DEXAMETHASONE
     Dosage: 8 MG (EVERY 0.5 DAY)
     Route: 048
     Dates: start: 20160225
  19. CANDESARTAN [Concomitant]
     Active Substance: CANDESARTAN
     Indication: Product used for unknown indication
     Dosage: 8 MG, QD
     Route: 048
  20. CHLORHEXIDINE GLUCONATE [Concomitant]
     Active Substance: CHLORHEXIDINE GLUCONATE
     Indication: Product used for unknown indication
     Dosage: 0.8 %, QD
     Route: 048
     Dates: start: 20160225
  21. CHLORHEXIDINE GLUCONATE [Concomitant]
     Active Substance: CHLORHEXIDINE GLUCONATE
     Dosage: 0.2 % (MOUTH WASH)
     Route: 048
     Dates: start: 20160225
  22. RIVAROXABAN [Concomitant]
     Active Substance: RIVAROXABAN
     Indication: Product used for unknown indication
     Dosage: 1 UNK, QD
     Route: 048
     Dates: start: 20181128
  23. SITAGLIPTIN [Concomitant]
     Active Substance: SITAGLIPTIN
     Indication: Product used for unknown indication
     Dosage: 100 MG, QD
     Route: 048
  24. TRAMADOL HYDROCHLORIDE [Concomitant]
     Active Substance: TRAMADOL HYDROCHLORIDE
     Indication: Product used for unknown indication
     Dosage: 200 MG, QD
     Route: 048
     Dates: start: 20160217
  25. TRAMADOL HYDROCHLORIDE [Concomitant]
     Active Substance: TRAMADOL HYDROCHLORIDE
     Dosage: 50 MG (EVERY 0.25 DAY)
     Route: 048
     Dates: start: 20160217
  26. ATORVASTATIN [Concomitant]
     Active Substance: ATORVASTATIN
     Indication: Product used for unknown indication
     Dosage: 20 MG, QD
     Route: 048
  27. ZOPICLONE [Concomitant]
     Active Substance: ZOPICLONE
     Indication: Product used for unknown indication
     Dosage: 3.75 MG, QD
     Route: 048
     Dates: start: 20160217
  28. DOCUSATE SODIUM [Concomitant]
     Active Substance: DOCUSATE SODIUM
     Indication: Product used for unknown indication
     Dosage: 400 MG, QD
     Route: 048
  29. DOCUSATE SODIUM [Concomitant]
     Active Substance: DOCUSATE SODIUM
     Dosage: 200 MG
     Route: 048
  30. METOCLOPRAMIDE [Concomitant]
     Active Substance: METOCLOPRAMIDE
     Indication: Product used for unknown indication
     Dosage: 30 MG, QD
     Route: 048
  31. METOCLOPRAMIDE [Concomitant]
     Active Substance: METOCLOPRAMIDE
     Dosage: 10 MG (EVERY 0.33 DAY)
     Route: 048
  32. POLYETHYLENE GLYCOLS [Concomitant]
     Active Substance: POLYETHYLENE GLYCOLS
     Indication: Product used for unknown indication
     Dosage: 2 DF, QD (SACHET)
     Route: 065
  33. POLYETHYLENE GLYCOLS [Concomitant]
     Active Substance: POLYETHYLENE GLYCOLS
     Dosage: SACHET
     Route: 065
  34. METFORMIN [Concomitant]
     Active Substance: METFORMIN HYDROCHLORIDE
     Indication: Product used for unknown indication
     Dosage: 2000 MG, QD
     Route: 065
  35. METFORMIN [Concomitant]
     Active Substance: METFORMIN HYDROCHLORIDE
     Dosage: 1000 MG (EVERY 0.5 DAY)
     Route: 065
  36. TINZAPARIN [Concomitant]
     Active Substance: TINZAPARIN
     Indication: Product used for unknown indication
     Dosage: 11000 UNK, QD (UNIT)
     Route: 058
     Dates: start: 20180915, end: 20181128
  37. DOMPERIDONE [Concomitant]
     Active Substance: DOMPERIDONE
     Indication: Product used for unknown indication
     Dosage: 30 MG, QD
     Route: 048
     Dates: start: 20160225
  38. DOMPERIDONE [Concomitant]
     Active Substance: DOMPERIDONE
     Dosage: 10 MG, (EVERY 0.33 DAYS)
     Route: 048
     Dates: start: 20160225
  39. MESALAMINE [Concomitant]
     Active Substance: MESALAMINE
     Indication: Gastrointestinal motility disorder
     Dosage: 800 MG EVERY 0.33 DAY
     Route: 048
     Dates: start: 20170523, end: 2017
  40. MESALAMINE [Concomitant]
     Active Substance: MESALAMINE
     Dosage: 2400 MG, QD
     Route: 048
     Dates: start: 20170503, end: 2017
  41. BUDESONIDE [Concomitant]
     Active Substance: BUDESONIDE
     Indication: Product used for unknown indication
     Dosage: 9 MG, QD
     Route: 048
     Dates: start: 20190403, end: 20190523
  42. BUDESONIDE [Concomitant]
     Active Substance: BUDESONIDE
     Dosage: 9 MG, QD
     Route: 048
     Dates: start: 20190403
  43. SODIUM PHOSPHATE, MONOBASIC, ANHYDROUS [Concomitant]
     Active Substance: SODIUM PHOSPHATE, MONOBASIC, ANHYDROUS
     Indication: Blood phosphorus decreased
     Dosage: UNK
     Route: 048
     Dates: start: 20190423, end: 20190425
  44. SODIUM PHOSPHATE, MONOBASIC, ANHYDROUS [Concomitant]
     Active Substance: SODIUM PHOSPHATE, MONOBASIC, ANHYDROUS
     Dosage: 2 DF
     Route: 048
     Dates: start: 20190611, end: 20190614
  45. SODIUM PHOSPHATE, MONOBASIC, ANHYDROUS [Concomitant]
     Active Substance: SODIUM PHOSPHATE, MONOBASIC, ANHYDROUS
     Dosage: 2 DF
     Route: 048
     Dates: start: 20190618, end: 20190625
  46. LOPERAMIDE [Concomitant]
     Active Substance: LOPERAMIDE
     Indication: Product used for unknown indication
     Dosage: 2 MG, PRN (AS NEEDED)
     Route: 048
     Dates: start: 20160225
  47. LOPERAMIDE [Concomitant]
     Active Substance: LOPERAMIDE
     Dosage: 4 MG, PRN
     Route: 048
     Dates: start: 201607, end: 201703
  48. POTASSIUM BICARBONATE\POTASSIUM CHLORIDE [Concomitant]
     Active Substance: POTASSIUM BICARBONATE\POTASSIUM CHLORIDE
     Indication: Product used for unknown indication
     Dosage: 2 DF, QD
     Route: 048
     Dates: start: 20160322, end: 20160326
  49. CHLOROCRESOL [Concomitant]
     Active Substance: CHLOROCRESOL
     Indication: Product used for unknown indication
     Dosage: UNK
     Route: 065
  50. POTASSIUM CHLORIDE [Concomitant]
     Active Substance: POTASSIUM CHLORIDE
     Indication: Blood potassium decreased
     Dosage: UNK (EVERY 3-4WEEKS FOR 9 CYCLES THEN 3 MONTS)
     Route: 042
     Dates: start: 20190611, end: 20190620
  51. AMLODIPINE [Concomitant]
     Active Substance: AMLODIPINE BESYLATE
     Indication: Hypertension
     Dosage: 5 MG, QD
     Route: 048
     Dates: start: 20180915, end: 20190529
  52. AMLODIPINE [Concomitant]
     Active Substance: AMLODIPINE BESYLATE
     Dosage: 5 MG, QD
     Route: 048
  53. LINAGLIPTIN [Concomitant]
     Active Substance: LINAGLIPTIN
     Indication: Product used for unknown indication
     Dosage: 5 MG, QD
     Route: 048
     Dates: start: 201809, end: 201905
  54. POTASSIUM BICARBONATE;SODIUM BICARBONATE;SODI [Concomitant]
     Indication: Hypophosphataemia
     Dosage: 2 DF (EVERY 0.33 DAYS)
     Route: 048
     Dates: start: 20190611, end: 20190614
  55. ZOLEDRONIC ACID [Concomitant]
     Active Substance: ZOLEDRONIC ACID
     Indication: Product used for unknown indication
     Dosage: 3.3 MG, QMO
     Route: 042
     Dates: start: 20160226
  56. ZOLEDRONIC ACID [Concomitant]
     Active Substance: ZOLEDRONIC ACID
     Dosage: EVERY 3-4WEEKS FOR 9 CYCLES THEN 3 MONTS
     Route: 042
     Dates: start: 20160414, end: 20170112
  57. ZOLEDRONIC ACID [Concomitant]
     Active Substance: ZOLEDRONIC ACID
     Dosage: 3.3 MG
     Route: 042
     Dates: start: 20170209, end: 20170323
  58. ZOLEDRONIC ACID [Concomitant]
     Active Substance: ZOLEDRONIC ACID
     Dosage: 3 MG
     Route: 042
     Dates: start: 20170628, end: 20171220
  59. ZOLEDRONIC ACID [Concomitant]
     Active Substance: ZOLEDRONIC ACID
     Dosage: 3.5 MG
     Route: 042
     Dates: start: 20190408, end: 20190408
  60. ZOLEDRONIC ACID [Concomitant]
     Active Substance: ZOLEDRONIC ACID
     Dosage: 3 MG
     Route: 042
     Dates: start: 20190510, end: 20190529
  61. ZOLEDRONIC ACID [Concomitant]
     Active Substance: ZOLEDRONIC ACID
     Dosage: UNK
     Route: 065
  62. GLICLAZIDE [Concomitant]
     Active Substance: GLICLAZIDE
     Indication: Product used for unknown indication
     Dosage: 80 MG, QD
     Route: 048
     Dates: start: 201809, end: 20190424
  63. GLICLAZIDE [Concomitant]
     Active Substance: GLICLAZIDE
     Dosage: 80 MG, QD
     Route: 048
     Dates: start: 20190425, end: 201905
  64. GLICLAZIDE [Concomitant]
     Active Substance: GLICLAZIDE
     Dosage: 40 MG, QD
     Route: 048
     Dates: start: 20190620, end: 20190705
  65. BENZYDAMINE HYDROCHLORIDE [Concomitant]
     Active Substance: BENZYDAMINE HYDROCHLORIDE
     Indication: Glossodynia
     Dosage: 5 ML
     Route: 061
     Dates: start: 20190606, end: 20190705
  66. ACTRAPID [Concomitant]
     Active Substance: INSULIN HUMAN
     Indication: Product used for unknown indication
     Dosage: UNK
     Route: 058
     Dates: start: 20190620, end: 20190705
  67. CHOLECALCIFEROL [Concomitant]
     Active Substance: CHOLECALCIFEROL
     Indication: Product used for unknown indication
     Dosage: 2 DF, QD
     Route: 048
     Dates: start: 20160303
  68. COCODAMOL [Concomitant]
     Active Substance: ACETAMINOPHEN\CODEINE PHOSPHATE
     Indication: Product used for unknown indication
     Dosage: 1 DF, PRN
     Route: 048
  69. COCODAMOL [Concomitant]
     Active Substance: ACETAMINOPHEN\CODEINE PHOSPHATE
     Dosage: 2 DF, PRN
     Route: 048
     Dates: start: 20160707
  70. SODIUM BICARBONATE [Concomitant]
     Active Substance: SODIUM BICARBONATE
     Indication: Product used for unknown indication
     Dosage: 2 DF
     Route: 065
     Dates: start: 20190611, end: 20190614
  71. DENOSUMAB [Concomitant]
     Active Substance: DENOSUMAB
     Indication: Product used for unknown indication
     Dosage: 120 MG (EVERY 3-4 WEEKS)
     Route: 058
     Dates: start: 20180110

REACTIONS (20)
  - Death [Fatal]
  - Pulmonary embolism [Fatal]
  - Off label use [Fatal]
  - Disease progression [Fatal]
  - Rectal haemorrhage [Not Recovered/Not Resolved]
  - Acute kidney injury [Recovered/Resolved]
  - Cholelithiasis [Not Recovered/Not Resolved]
  - Hypomagnesaemia [Recovered/Resolved]
  - Decreased appetite [Not Recovered/Not Resolved]
  - Weight decreased [Recovered/Resolved]
  - Back pain [Not Recovered/Not Resolved]
  - Vomiting [Recovered/Resolved]
  - Diarrhoea [Recovered/Resolved]
  - Rash pruritic [Recovered/Resolved]
  - Weight decreased [Not Recovered/Not Resolved]
  - Urinary tract infection [Recovered/Resolved]
  - Diarrhoea [Recovered/Resolved]
  - Diarrhoea [Recovered/Resolved]
  - Diarrhoea [Recovered/Resolved]
  - Diarrhoea [Recovered/Resolved]

NARRATIVE: CASE EVENT DATE: 20160323
